FAERS Safety Report 7816535-5 (Version None)
Quarter: 2011Q4

REPORT INFORMATION
  Report Type: 
  Country: None (occurrence: None)
  Receive Date: 20111017
  Receipt Date: 20111012
  Transmission Date: 20120403
  Serious: Yes (Other)
  Sender: FDA-Public Use
  Company Number: JP-PFIZER INC-2011244319

PATIENT
  Age: 69 Year
  Sex: Female

DRUGS (4)
  1. LYRICA [Suspect]
     Indication: SCIATICA
     Dosage: 25 MG, 2X/DAY
     Route: 048
     Dates: start: 20110928, end: 20110930
  2. ASPIRIN [Concomitant]
     Dosage: UNK
     Route: 048
  3. TRAMADOL HYDROCHLORIDE AND ACETAMINOPHEN [Concomitant]
     Indication: SCIATICA
     Dosage: UNK
     Route: 048
     Dates: start: 20110928, end: 20110930
  4. PLETAL [Concomitant]
     Dosage: UNK
     Route: 048

REACTIONS (2)
  - BLOOD PRESSURE INCREASED [None]
  - DIZZINESS [None]
